FAERS Safety Report 9572299 (Version 1)
Quarter: 2013Q4

REPORT INFORMATION
  Report Type: Spontaneous
  Country: IT (occurrence: IT)
  Receive Date: 20131001
  Receipt Date: 20131001
  Transmission Date: 20140711
  Serious: Yes (Hospitalization)
  Sender: FDA-Public Use
  Company Number: IT-ASTRAZENECA-2013SE71066

PATIENT
  Age: 17140 Day
  Sex: Male

DRUGS (3)
  1. METFORAL [Suspect]
     Indication: DIABETES MELLITUS
     Route: 048
     Dates: start: 20101220, end: 20120421
  2. ANTRA [Suspect]
     Indication: CROHN^S DISEASE
     Route: 048
     Dates: start: 20110906, end: 20120421
  3. CONGESCOR [Suspect]
     Indication: ARTERIAL INSUFFICIENCY
     Route: 048
     Dates: start: 20101020

REACTIONS (2)
  - Bradykinesia [Recovered/Resolved]
  - Intentional drug misuse [Unknown]
